FAERS Safety Report 7507073-8 (Version None)
Quarter: 2011Q2

REPORT INFORMATION
  Report Type: 
  Country: None (occurrence: None)
  Receive Date: 20110526
  Receipt Date: 20110516
  Transmission Date: 20111010
  Serious: Yes (Hospitalization)
  Sender: FDA-Public Use
  Company Number: DE-ELI_LILLY_AND_COMPANY-DE201105005033

PATIENT
  Sex: Female
  Weight: 75 kg

DRUGS (2)
  1. GEMCITABINE HYDROCHLORIDE [Suspect]
     Indication: BREAST CANCER
     Dosage: 1170 MG, UNKNOWN
     Route: 042
     Dates: start: 20110512
  2. DOCETAXEL [Suspect]
     Indication: BREAST CANCER
     Dosage: 132.75 MG, UNKNOWN
     Route: 042
     Dates: start: 20110512

REACTIONS (1)
  - GASTROINTESTINAL PAIN [None]
